FAERS Safety Report 19443878 (Version 6)
Quarter: 2022Q1

REPORT INFORMATION
  Report Type: Spontaneous
  Country: US (occurrence: US)
  Receive Date: 20210621
  Receipt Date: 20220317
  Transmission Date: 20220424
  Serious: Yes (Death, Hospitalization)
  Sender: FDA-Public Use
  Company Number: US-MERCK HEALTHCARE KGAA-9234617

PATIENT
  Age: 57 Year
  Sex: Female
  Weight: 73 kg

DRUGS (5)
  1. IBUPROFEN [Suspect]
     Active Substance: IBUPROFEN
     Indication: Back pain
     Dosage: 500 MG AS NECESSARY
     Route: 048
     Dates: end: 20210423
  2. BINTRAFUSP ALFA [Suspect]
     Active Substance: BINTRAFUSP ALFA
     Indication: Cervix carcinoma
     Dosage: 1200 MG, Q2W
     Route: 042
     Dates: start: 20210413, end: 20210413
  3. ADENOVIRUS VACCINE [Suspect]
     Active Substance: ADENOVIRUS VACCINE
     Indication: Cervix carcinoma
     Dosage: 5X10E11/PARTICLE UNITS/ML, Q2W
     Route: 058
     Dates: start: 20210413, end: 20210413
  4. FEROGLOBIN B12 (COPPER + FOLIC ACID + IRON + VITAMIN B6 + VITAMIN B12 [Concomitant]
     Indication: Mineral supplementation
     Dosage: LIQUID
     Route: 065
  5. ASPIRIN [Concomitant]
     Active Substance: ASPIRIN
     Indication: Product used for unknown indication
     Dosage: EVERY OTHER DAY
     Route: 048

REACTIONS (1)
  - Mucosal haemorrhage [Fatal]

NARRATIVE: CASE EVENT DATE: 20210423
